FAERS Safety Report 19457086 (Version 1)
Quarter: 2021Q2

REPORT INFORMATION
  Report Type: Spontaneous
  Country: HU (occurrence: HU)
  Receive Date: 20210624
  Receipt Date: 20210624
  Transmission Date: 20210717
  Serious: Yes (Life-Threatening, Other)
  Sender: FDA-Public Use
  Company Number: HU-PFIZER INC-2021699012

PATIENT
  Age: 49 Year
  Sex: Female

DRUGS (7)
  1. AZACITIDINE. [Suspect]
     Active Substance: AZACITIDINE
     Dosage: UNK
     Route: 058
     Dates: start: 202105
  2. CYTARABINE. [Suspect]
     Active Substance: CYTARABINE
     Dosage: UNK
     Route: 058
     Dates: start: 202104
  3. RUXOLITINIB [Suspect]
     Active Substance: RUXOLITINIB
     Indication: POLYCYTHAEMIA VERA
     Dosage: 20 MG, 1X/DAY, (10 MG, BID)
     Route: 065
     Dates: start: 2013, end: 2019
  4. MOMELOTINIB [Concomitant]
     Active Substance: MOMELOTINIB
     Dosage: 200 MG, QD
     Route: 065
     Dates: end: 202103
  5. MOMELOTINIB [Concomitant]
     Active Substance: MOMELOTINIB
     Dosage: UNK
     Route: 065
     Dates: start: 202008
  6. RUXOLITINIB [Suspect]
     Active Substance: RUXOLITINIB
     Dosage: 30 MG, 1X/DAY, (15 MG, BID)
     Route: 065
     Dates: start: 2019
  7. HYDROXYCARBAMID [Concomitant]
     Active Substance: HYDROXYUREA
     Indication: CYTOGENETIC ANALYSIS ABNORMAL
     Dosage: UNK
     Route: 065
     Dates: start: 202103

REACTIONS (13)
  - White blood cell count abnormal [Recovered/Resolved]
  - Thrombocytopenia [Unknown]
  - Neoplasm progression [Unknown]
  - Fatigue [Unknown]
  - Splenomegaly [Unknown]
  - Anaemia [Recovering/Resolving]
  - Leukocytosis [Unknown]
  - ASXL1 gene mutation [Unknown]
  - Myeloblast count decreased [Unknown]
  - Myelofibrosis [Unknown]
  - Platelet count abnormal [Unknown]
  - Cytogenetic analysis abnormal [Unknown]
  - Hyperhidrosis [Unknown]

NARRATIVE: CASE EVENT DATE: 2019
